FAERS Safety Report 10221378 (Version 1)
Quarter: 2014Q2

REPORT INFORMATION
  Report Type: Spontaneous
  Country: US (occurrence: None)
  Receive Date: 20140605
  Receipt Date: 20140605
  Transmission Date: 20141212
  Serious: No
  Sender: FDA-Public Use
  Company Number: None

PATIENT
  Age: 69 Year
  Sex: Male
  Weight: 89 kg

DRUGS (2)
  1. ZOLEDRONIC ACID [Suspect]
     Indication: PROPHYLAXIS
     Dosage: 4 MG Q4 MONTHS IVPB?Q6 WEEKS FROM 6/1/12 TO 1/10/14
     Dates: start: 20120601, end: 20140110
  2. ZOLEDRONIC ACID [Suspect]
     Indication: METASTASES TO BONE
     Dosage: 4 MG Q4 MONTHS IVPB?Q6 WEEKS FROM 6/1/12 TO 1/10/14
     Dates: start: 20120601, end: 20140110

REACTIONS (1)
  - Osteonecrosis of jaw [None]
